FAERS Safety Report 17395799 (Version 1)
Quarter: 2020Q1

REPORT INFORMATION
  Report Type: Spontaneous
  Country: US (occurrence: US)
  Receive Date: 20200207
  Receipt Date: 20200207
  Transmission Date: 20200409
  Serious: Yes (Death, Hospitalization)
  Sender: FDA-Public Use
  Company Number: None

PATIENT
  Age: 39 Year
  Sex: Male
  Weight: 85.5 kg

DRUGS (2)
  1. HERBAL SUBSTANCE KRATOM [Suspect]
     Active Substance: HERBALS\MITRAGYNINE
     Indication: ANXIETY
  2. HERBAL SUBSTANCE KRATOM [Suspect]
     Active Substance: HERBALS\MITRAGYNINE
     Indication: DRUG DEPENDENCE

REACTIONS (3)
  - Seizure [None]
  - Cardio-respiratory arrest [None]
  - Withdrawal of life support [None]

NARRATIVE: CASE EVENT DATE: 20200125
